FAERS Safety Report 9530021 (Version 1)
Quarter: 2013Q2

REPORT INFORMATION
  Report Type: Spontaneous
  Country: US (occurrence: None)
  Receive Date: 20130402
  Receipt Date: 20130402
  Transmission Date: 20140414
  Serious: No
  Sender: FDA-Public Use
  Company Number: RB-48221-2012

PATIENT
  Age: 45 Year
  Sex: Male

DRUGS (1)
  1. SUBOXONE 8 MG [Suspect]
     Dosage: FILM; VARIOUS DOSES SUBLINGUAL
     Dates: start: 201211, end: 20121205

REACTIONS (5)
  - Blood glucose increased [None]
  - Tremor [None]
  - Diarrhoea [None]
  - Migraine [None]
  - Vomiting [None]
